FAERS Safety Report 5368766-4 (Version None)
Quarter: 2007Q2

REPORT INFORMATION
  Report Type: 
  Country: None (occurrence: None)
  Receive Date: 20070620
  Receipt Date: 20070611
  Transmission Date: 20071010
  Serious: Yes (Life-Threatening, Hospitalization)
  Sender: FDA-Public Use
  Company Number: 070517-0000521

PATIENT
  Age: 32 Year
  Sex: Female

DRUGS (12)
  1. DACTINOMYCIN [Suspect]
     Indication: CHORIOCARCINOMA
     Dosage: SEE IMAGE
     Route: 042
     Dates: start: 20050215, end: 20050217
  2. DACTINOMYCIN [Suspect]
     Indication: CHORIOCARCINOMA
     Dosage: SEE IMAGE
     Route: 042
     Dates: start: 20050307, end: 20050311
  3. DACTINOMYCIN [Suspect]
     Indication: CHORIOCARCINOMA
     Dosage: SEE IMAGE
     Route: 042
     Dates: start: 20050404, end: 20050408
  4. DACTINOMYCIN [Suspect]
     Indication: CHORIOCARCINOMA
     Dosage: SEE IMAGE
     Route: 042
     Dates: start: 20050509, end: 20050513
  5. METHOTREXATE [Suspect]
     Indication: CHORIOCARCINOMA
     Dosage: SEE IMAGE
     Route: 042
     Dates: start: 20050215, end: 20050215
  6. METHOTREXATE [Suspect]
     Indication: CHORIOCARCINOMA
     Dosage: SEE IMAGE
     Route: 042
     Dates: start: 20050307, end: 20050307
  7. METHOTREXATE [Suspect]
     Indication: CHORIOCARCINOMA
     Dosage: SEE IMAGE
     Route: 042
     Dates: start: 20050404, end: 20050404
  8. METHOTREXATE [Suspect]
     Indication: CHORIOCARCINOMA
     Dosage: SEE IMAGE
     Route: 042
     Dates: start: 20050509, end: 20050509
  9. ESTOPOSIDE (ETOPOSIDE) [Suspect]
     Indication: CHORIOCARCINOMA
     Dosage: SEE IMAGE
     Route: 042
     Dates: start: 20050125, end: 20050217
  10. ESTOPOSIDE (ETOPOSIDE) [Suspect]
     Indication: CHORIOCARCINOMA
     Dosage: SEE IMAGE
     Route: 042
     Dates: start: 20050307, end: 20050311
  11. ESTOPOSIDE (ETOPOSIDE) [Suspect]
     Indication: CHORIOCARCINOMA
     Dosage: SEE IMAGE
     Route: 042
     Dates: start: 20050404, end: 20050408
  12. ESTOPOSIDE (ETOPOSIDE) [Suspect]
     Indication: CHORIOCARCINOMA
     Dosage: SEE IMAGE
     Route: 042
     Dates: start: 20050509, end: 20050513

REACTIONS (1)
  - METRORRHAGIA [None]
